FAERS Safety Report 4417530-9 (Version None)
Quarter: 2004Q3

REPORT INFORMATION
  Report Type: 
  Country: None (occurrence: None)
  Receive Date: 20040804
  Receipt Date: 20040720
  Transmission Date: 20050211
  Serious: Yes (Other)
  Sender: FDA-Public Use
  Company Number: 002099

PATIENT
  Sex: Female

DRUGS (2)
  1. MEDROXYPROGESTERONE ACETATE [Suspect]
     Dates: end: 20030101
  2. PREMARIN [Suspect]
     Dates: end: 20030101

REACTIONS (3)
  - CEREBROVASCULAR ACCIDENT [None]
  - METASTASES TO LYMPH NODES [None]
  - METASTATIC NEOPLASM [None]
